FAERS Safety Report 23753219 (Version 2)
Quarter: 2024Q2

REPORT INFORMATION
  Report Type: Spontaneous
  Country: AU (occurrence: AU)
  Receive Date: 20240417
  Receipt Date: 20240618
  Transmission Date: 20240716
  Serious: Yes (Other)
  Sender: FDA-Public Use
  Company Number: AU-MYLANLABS-2024M1034577

PATIENT
  Sex: Female

DRUGS (1)
  1. ALBUTEROL SULFATE [Suspect]
     Active Substance: ALBUTEROL SULFATE
     Indication: Product used for unknown indication
     Dosage: UNK
     Route: 065

REACTIONS (6)
  - Choking [Not Recovered/Not Resolved]
  - Dyspnoea [Unknown]
  - Gait disturbance [Unknown]
  - Expired product administered [Unknown]
  - Incorrect dose administered [Unknown]
  - Product complaint [Unknown]
